FAERS Safety Report 12993409 (Version 1)
Quarter: 2016Q4

REPORT INFORMATION
  Report Type: Other
  Country: HK (occurrence: HK)
  Receive Date: 20161202
  Receipt Date: 20161202
  Transmission Date: 20170207
  Serious: Yes (Hospitalization)
  Sender: FDA-Public Use
  Company Number: HK-LUPIN PHARMACEUTICALS INC.-2016-05344

PATIENT
  Age: 52 Year
  Sex: Female

DRUGS (1)
  1. MEFENAMIC ACID. [Suspect]
     Active Substance: MEFENAMIC ACID
     Indication: DYSMENORRHOEA
     Route: 065

REACTIONS (1)
  - Renal cortical necrosis [Recovering/Resolving]
